FAERS Safety Report 8492804-3 (Version None)
Quarter: 2012Q3

REPORT INFORMATION
  Report Type: 
  Country: None (occurrence: None)
  Receive Date: 20120706
  Receipt Date: 20120628
  Transmission Date: 20120928
  Serious: Yes (Death, Life-Threatening, Hospitalization)
  Sender: FDA-Public Use
  Company Number: JP-BAYER-2012-021609

PATIENT
  Age: 74 Year
  Sex: Male
  Weight: 62 kg

DRUGS (14)
  1. NEXAVAR [Suspect]
     Indication: HEPATIC NEOPLASM MALIGNANT
     Dosage: 400 MG, BID
     Route: 048
     Dates: start: 20120121, end: 20120318
  2. DIGOXIN [Concomitant]
     Dosage: 0.2 MG, OM
     Route: 048
  3. LASIX [Concomitant]
     Dosage: 20 MG, OM
     Route: 048
  4. OXYCONTIN [Concomitant]
     Dosage: DAILY DOSE 30 MG
     Route: 048
  5. MAGNESIUM OXIDE [Concomitant]
     Dosage: 330 MG, TID
     Route: 048
  6. MOTILIUM [Concomitant]
     Dosage: UNK
     Route: 048
  7. WARFARIN SODIUM [Concomitant]
     Dosage: 1 MG, OM
     Route: 048
  8. ALOSENN [Concomitant]
     Dosage: 1 G, HS
     Route: 048
  9. ALDACTONE [Concomitant]
     Dosage: 25 MG, OM
     Route: 048
  10. OXYCODONE HYDROCHLORIDE [Concomitant]
     Indication: PAIN
     Dosage: 2.5 MG, PRN
     Route: 048
  11. OXYCODONE HYDROCHLORIDE [Concomitant]
     Dosage: 5 MG, PRN
     Route: 048
  12. POLARAMINE [Concomitant]
     Dosage: 2 MG, HS
     Route: 048
  13. PROCHLORPERAZINE [Concomitant]
     Dosage: UNK
     Route: 048
  14. LANSOPRAZOLE [Concomitant]
     Dosage: 15 MG, HS
     Route: 048

REACTIONS (10)
  - DIARRHOEA [None]
  - PYREXIA [None]
  - HYPERKALAEMIA [None]
  - INTERNATIONAL NORMALISED RATIO INCREASED [None]
  - HYPERNATRAEMIA [None]
  - HEPATIC NEOPLASM MALIGNANT [None]
  - SEPSIS [None]
  - DISSEMINATED INTRAVASCULAR COAGULATION [None]
  - DECREASED APPETITE [None]
  - METASTASES TO CENTRAL NERVOUS SYSTEM [None]
